FAERS Safety Report 4641256-X (Version None)
Quarter: 2005Q2

REPORT INFORMATION
  Report Type: 
  Country: None (occurrence: None)
  Receive Date: 20050419
  Receipt Date: 20050405
  Transmission Date: 20051028
  Serious: No
  Sender: FDA-Public Use
  Company Number: 05P-028-0296840-00

PATIENT
  Age: 62 Year
  Sex: Female
  Weight: 63.5036 kg

DRUGS (8)
  1. HUMIRA [Suspect]
     Indication: RHEUMATOID ARTHRITIS
     Dosage: 40 MG, 1 IN 1 2 WK, SUBCUTANEOUS
     Route: 058
     Dates: start: 20040401, end: 20050331
  2. METHOTREXATE [Concomitant]
  3. FOLIC ACID [Concomitant]
  4. FOSINOPRIL SODIUM [Concomitant]
  5. MEDROXYPROGESTERONE ACETATE [Concomitant]
  6. STROGENS CONJUGATED [Concomitant]
  7. RANITIDINE [Concomitant]
  8. CELECOXIB) [Concomitant]

REACTIONS (1)
  - NODULE ON EXTREMITY [None]
